FAERS Safety Report 19951723 (Version 1)
Quarter: 2021Q4

REPORT INFORMATION
  Report Type: Spontaneous
  Country: DE (occurrence: DE)
  Receive Date: 20211013
  Receipt Date: 20211013
  Transmission Date: 20220304
  Serious: Yes (Hospitalization, Other)
  Sender: FDA-Public Use
  Company Number: DE-ADRED-06798-01

PATIENT
  Age: 56 Year
  Sex: Female
  Weight: 86 kg

DRUGS (3)
  1. RAMIPRIL [Suspect]
     Active Substance: RAMIPRIL
     Indication: Product used for unknown indication
     Dosage: 5 MILLIGRAM, QD, (5 MG, 1-0-0-0, TABLETTEN)
     Route: 048
  2. METOPROLOL [Suspect]
     Active Substance: METOPROLOL
     Indication: Product used for unknown indication
     Dosage: 47.5 MILLIGRAM, QD, (47.5 MG, 1-0-0-0, RETARD-TABLETTEN)
     Route: 048
  3. LEVOTHYROXINE SODIUM [Concomitant]
     Active Substance: LEVOTHYROXINE SODIUM
     Dosage: 0.15 MILLIGRAM, QD, (0.15 MG, 1-0-0-0, TABLETTEN)
     Route: 048

REACTIONS (5)
  - Muscular weakness [Unknown]
  - Dizziness [Unknown]
  - Coordination abnormal [Unknown]
  - Headache [Unknown]
  - Bradycardia [Unknown]
